FAERS Safety Report 6039066-4 (Version None)
Quarter: 2009Q1

REPORT INFORMATION
  Report Type: 
  Country: None (occurrence: None)
  Receive Date: 20090115
  Receipt Date: 20090113
  Transmission Date: 20090719
  Serious: Yes (Hospitalization)
  Sender: FDA-Public Use
  Company Number: US-ASTRAZENECA-2009UW01019

PATIENT
  Age: 66 Year
  Sex: Female
  Weight: 98 kg

DRUGS (10)
  1. CRESTOR [Suspect]
     Indication: BLOOD CHOLESTEROL INCREASED
     Route: 048
     Dates: start: 20061124
  2. MICROGLYBURIDE [Concomitant]
     Dosage: 3MG
  3. METFORMIN HCL [Concomitant]
     Dosage: 500MG
  4. NOVOLIN REGULAR INSULIN [Concomitant]
     Dosage: SLIDING SCALE
  5. LANTUS [Concomitant]
     Dosage: 40UNITS QHS
  6. TRAXNE [Concomitant]
     Dosage: 7.5MG
  7. ATENOLOL [Concomitant]
     Dosage: 50MG
     Route: 048
  8. BENICAR [Concomitant]
     Dosage: 40/25MG
  9. PROCARDIA [Concomitant]
  10. TRAZODONE HCL [Concomitant]

REACTIONS (3)
  - BLOOD PRESSURE INCREASED [None]
  - CARDIAC DISORDER [None]
  - HEART RATE INCREASED [None]
